FAERS Safety Report 22172421 (Version 6)
Quarter: 2024Q2

REPORT INFORMATION
  Report Type: Spontaneous
  Country: US (occurrence: US)
  Receive Date: 20230404
  Receipt Date: 20240503
  Transmission Date: 20240716
  Serious: Yes (Other)
  Sender: FDA-Public Use
  Company Number: US-PFIZER INC-PV202300059893

PATIENT
  Age: 70 Year
  Sex: Female
  Weight: 77.098 kg

DRUGS (1)
  1. BOSULIF [Suspect]
     Active Substance: BOSUTINIB MONOHYDRATE
     Indication: Chronic myeloid leukaemia
     Dosage: 400 MG, 1X/DAY
     Route: 048

REACTIONS (7)
  - Mental impairment [Unknown]
  - Memory impairment [Unknown]
  - Drug hypersensitivity [Unknown]
  - Dyspnoea [Unknown]
  - Cough [Unknown]
  - Aphonia [Unknown]
  - Spleen disorder [Unknown]
